FAERS Safety Report 13267742 (Version 1)
Quarter: 2017Q1

REPORT INFORMATION
  Report Type: Spontaneous
  Country: US (occurrence: US)
  Receive Date: 20170223
  Receipt Date: 20170223
  Transmission Date: 20170428
  Serious: Yes (Disabling)
  Sender: FDA-Public Use
  Company Number: None

PATIENT
  Sex: Male
  Weight: 112.5 kg

DRUGS (5)
  1. TRAZODONE [Concomitant]
     Active Substance: TRAZODONE HYDROCHLORIDE
  2. DIABETES INSULIN [Concomitant]
  3. METFORMIN [Concomitant]
     Active Substance: METFORMIN HYDROCHLORIDE
  4. BOTOX [Suspect]
     Active Substance: ONABOTULINUMTOXINA
     Indication: NECK PAIN
     Dosage: ?          OTHER FREQUENCY:3 MONTHS;?
     Route: 058
     Dates: start: 20161031, end: 20161031
  5. GABENTIN [Concomitant]
     Active Substance: GABAPENTIN

REACTIONS (4)
  - Skin discolouration [None]
  - Abdominal pain [None]
  - Headache [None]
  - Liver disorder [None]
